FAERS Safety Report 8390000-1 (Version None)
Quarter: 2012Q2

REPORT INFORMATION
  Report Type: 
  Country: None (occurrence: None)
  Receive Date: 20120529
  Receipt Date: 20120525
  Transmission Date: 20120825
  Serious: No
  Sender: FDA-Public Use
  Company Number: US-PFIZER INC-2012127327

PATIENT
  Sex: Male
  Weight: 60.317 kg

DRUGS (2)
  1. NICOTROL [Suspect]
     Indication: NICOTINE DEPENDENCE
     Dosage: UNK, 2 TIMES IN AN HOUR
     Dates: start: 20120501, end: 20120525
  2. NICOTINE [Suspect]
     Indication: SMOKING CESSATION THERAPY
     Dosage: UNK, DAILY
     Dates: start: 20120501, end: 20120525

REACTIONS (1)
  - DIZZINESS [None]
